FAERS Safety Report 9834130 (Version 2)
Quarter: 2014Q1

REPORT INFORMATION
  Report Type: Spontaneous
  Country: JP (occurrence: JP)
  Receive Date: 20140122
  Receipt Date: 20140220
  Transmission Date: 20141002
  Serious: Yes (Other)
  Sender: FDA-Public Use
  Company Number: JP-ASTRAZENECA-2014SE04294

PATIENT
  Age: 64 Year
  Sex: Male

DRUGS (13)
  1. SEROQUEL [Suspect]
     Indication: INSOMNIA
     Route: 048
  2. RIVOTRIL [Suspect]
     Route: 048
  3. TAKEPRON [Suspect]
     Route: 065
     Dates: end: 2014
  4. MEMARY [Suspect]
     Route: 048
  5. FP-OD [Suspect]
     Route: 048
  6. NEUROTROPIN [Suspect]
     Route: 048
  7. BUP-4 [Suspect]
     Route: 048
  8. ANTIBIOTICS [Concomitant]
     Indication: HELICOBACTER INFECTION
     Route: 065
     Dates: start: 20131225, end: 20131231
  9. MADOPAR [Concomitant]
  10. SYMMETREL [Concomitant]
  11. BI SIFROL [Concomitant]
  12. MAGLAX [Concomitant]
     Route: 048
  13. NEO-MINOPHAGEN C [Concomitant]

REACTIONS (4)
  - Liver disorder [Recovering/Resolving]
  - Renal impairment [Unknown]
  - Pseudoaldosteronism [Unknown]
  - Off label use [Recovered/Resolved]
